FAERS Safety Report 8579342-4 (Version None)
Quarter: 2012Q3

REPORT INFORMATION
  Report Type: 
  Country: None (occurrence: None)
  Receive Date: 20120808
  Receipt Date: 20120806
  Transmission Date: 20120928
  Serious: Yes (Other)
  Sender: FDA-Public Use
  Company Number: FR-TEVA-342449USA

PATIENT
  Sex: Male

DRUGS (6)
  1. DEXAMETHASONE [Suspect]
     Indication: MANTLE CELL LYMPHOMA
  2. BACTRIM [Concomitant]
     Indication: PROPHYLAXIS
     Dates: start: 20120221
  3. RITUXIMAB [Suspect]
     Indication: MANTLE CELL LYMPHOMA
     Dates: start: 20120221
  4. VALACYCLOVIR HYDROCHLORIDE [Concomitant]
     Indication: PROPHYLAXIS
     Dates: start: 20120221
  5. TREANDA [Suspect]
     Indication: MANTLE CELL LYMPHOMA
     Route: 042
     Dates: start: 20120221
  6. BORTEZOMIB [Suspect]
     Indication: MANTLE CELL LYMPHOMA
     Route: 058
     Dates: start: 20120221, end: 20120427

REACTIONS (2)
  - HERPES ZOSTER [None]
  - MUSCULOSKELETAL CHEST PAIN [None]
